FAERS Safety Report 11146226 (Version 1)
Quarter: 2015Q2

REPORT INFORMATION
  Report Type: Report from Study
  Country: FR (occurrence: FR)
  Receive Date: 20150528
  Receipt Date: 20150528
  Transmission Date: 20150821
  Serious: Yes (Death, Other)
  Sender: FDA-Public Use
  Company Number: FR-ABBVIE-15P-056-1398656-00

PATIENT
  Sex: Female

DRUGS (1)
  1. DUODOPA [Suspect]
     Active Substance: CARBIDOPA\LEVODOPA
     Indication: PARKINSON^S DISEASE
     Route: 050

REACTIONS (4)
  - Cardiac arrest [Fatal]
  - Urinary tract infection [Fatal]
  - Abdominal pain [Fatal]
  - Abdominal distension [Fatal]

NARRATIVE: CASE EVENT DATE: 20150523
